FAERS Safety Report 7057118-7 (Version None)
Quarter: 2010Q4

REPORT INFORMATION
  Report Type: 
  Country: None (occurrence: None)
  Receive Date: 20101022
  Receipt Date: 20101007
  Transmission Date: 20110411
  Serious: Yes (Other)
  Sender: FDA-Public Use
  Company Number: US-JNJFOC-20101004516

PATIENT
  Sex: Male

DRUGS (10)
  1. DOXIL [Suspect]
     Indication: MULTIPLE MYELOMA
     Route: 042
  2. INTERFERON [Suspect]
     Indication: MULTIPLE MYELOMA
     Route: 065
  3. REVLIMID [Suspect]
     Indication: MULTIPLE MYELOMA
     Route: 048
  4. REVLIMID [Suspect]
     Route: 048
  5. REVLIMID [Suspect]
     Route: 048
  6. ZOMETA [Suspect]
     Indication: MULTIPLE MYELOMA
     Route: 065
  7. DEXAMETHASONE [Suspect]
     Indication: MULTIPLE MYELOMA
     Route: 065
  8. DEXAMETHASONE [Suspect]
     Route: 065
  9. VINCRISTINE [Suspect]
     Indication: MULTIPLE MYELOMA
     Route: 065
  10. VELCADE [Suspect]
     Indication: MULTIPLE MYELOMA
     Route: 065

REACTIONS (5)
  - ACUTE MYELOID LEUKAEMIA [None]
  - FATIGUE [None]
  - MYELODYSPLASTIC SYNDROME [None]
  - OSTEONECROSIS OF JAW [None]
  - PANCYTOPENIA [None]
